FAERS Safety Report 6506190-9 (Version None)
Quarter: 2009Q4

REPORT INFORMATION
  Report Type: 
  Country: None (occurrence: None)
  Receive Date: 20091218
  Receipt Date: 20091214
  Transmission Date: 20100525
  Serious: Yes (Other)
  Sender: FDA-Public Use
  Company Number: DE-JNJCH-2009032285

PATIENT
  Age: 43 Year
  Sex: Female
  Weight: 65 kg

DRUGS (1)
  1. REGAINE FRAUEN [Suspect]
     Indication: DRUG USE FOR UNKNOWN INDICATION
     Dosage: TEXT:UNSPECIFIED
     Route: 061

REACTIONS (1)
  - THROMBOCYTOPENIA [None]
